FAERS Safety Report 6672971-4 (Version None)
Quarter: 2010Q2

REPORT INFORMATION
  Report Type: 
  Country: None (occurrence: None)
  Receive Date: 20100408
  Receipt Date: 20100403
  Transmission Date: 20101027
  Serious: Yes (Other)
  Sender: FDA-Public Use
  Company Number: A0853798A

PATIENT
  Sex: Female

DRUGS (1)
  1. FLUTICASONE PROPIONATE [Suspect]
     Indication: DRUG USE FOR UNKNOWN INDICATION
     Dosage: 1PUFF TWICE PER DAY
     Route: 045

REACTIONS (7)
  - CHOKING [None]
  - COUGH [None]
  - DRUG INEFFECTIVE [None]
  - MIDDLE INSOMNIA [None]
  - PRODUCT QUALITY ISSUE [None]
  - RHINORRHOEA [None]
  - SINUS DISORDER [None]
